FAERS Safety Report 8834282 (Version 1)
Quarter: 2012Q4

REPORT INFORMATION
  Report Type: Report from Study
  Country: US (occurrence: US)
  Receive Date: 20121010
  Receipt Date: 20121010
  Transmission Date: 20130627
  Serious: Yes (Hospitalization)
  Sender: FDA-Public Use
  Company Number: US-ABBOTT-12P-163-0991934-00

PATIENT
  Sex: Male

DRUGS (2)
  1. HUMIRA [Suspect]
     Route: 058
     Dates: start: 20100222
  2. HUMIRA [Suspect]

REACTIONS (1)
  - Hospitalisation [Unknown]
